FAERS Safety Report 12701633 (Version 1)
Quarter: 2016Q3

REPORT INFORMATION
  Report Type: Spontaneous
  Country: US (occurrence: US)
  Receive Date: 20160831
  Receipt Date: 20160831
  Transmission Date: 20161109
  Serious: Yes (Hospitalization, Other)
  Sender: FDA-Public Use
  Company Number: US-ASTRAZENECA-2016SE91147

PATIENT
  Age: 62 Year
  Sex: Male
  Weight: 79.4 kg

DRUGS (11)
  1. CRESTOR [Suspect]
     Active Substance: ROSUVASTATIN CALCIUM
     Indication: BLOOD CHOLESTEROL INCREASED
     Route: 048
     Dates: start: 2004
  2. PERCOCET [Concomitant]
     Active Substance: ACETAMINOPHEN\OXYCODONE HYDROCHLORIDE
     Indication: PAIN IN EXTREMITY
     Dosage: 5/325MG UP TO TWICE DAILY
     Route: 048
  3. METOPROLOL ER [Suspect]
     Active Substance: METOPROLOL SUCCINATE
     Indication: CARDIAC DISORDER
     Route: 048
     Dates: start: 2004
  4. CHEMOTHERAPY [Suspect]
     Active Substance: UNSPECIFIED INGREDIENT
     Route: 065
  5. OXYGEN. [Concomitant]
     Active Substance: OXYGEN
     Indication: CHRONIC OBSTRUCTIVE PULMONARY DISEASE
     Route: 045
  6. RADIATION THERAPY [Suspect]
     Active Substance: RADIATION THERAPY
     Route: 065
  7. BAYER LOW DOSE ASPIRIN [Concomitant]
     Indication: CARDIAC DISORDER
     Route: 048
  8. MIRALAX [Concomitant]
     Active Substance: POLYETHYLENE GLYCOL 3350
     Indication: CONSTIPATION
     Dosage: AS NEEDED
     Route: 048
  9. DIATELAZAM HCL ER [Concomitant]
     Indication: CARDIAC DISORDER
     Route: 048
     Dates: start: 2010
  10. SYMBICORT [Suspect]
     Active Substance: BUDESONIDE\FORMOTEROL FUMARATE DIHYDRATE
     Indication: CHRONIC OBSTRUCTIVE PULMONARY DISEASE
     Dosage: 160/4.5 MCG, 2 PUFFS TWICE DAILY
     Route: 055
     Dates: start: 201608
  11. COMBIVENT [Concomitant]
     Active Substance: ALBUTEROL SULFATE\IPRATROPIUM BROMIDE
     Indication: CHRONIC OBSTRUCTIVE PULMONARY DISEASE
     Dosage: AS NEEDED UP TO 6 PUFFS A DAY
     Route: 055
     Dates: start: 1996

REACTIONS (11)
  - Lung disorder [Unknown]
  - Arthralgia [Unknown]
  - Pain in extremity [Unknown]
  - Chest pain [Unknown]
  - Hepatic cancer [Unknown]
  - Gait disturbance [Unknown]
  - Body height decreased [Unknown]
  - Lung neoplasm malignant [Unknown]
  - Cartilage injury [Unknown]
  - Myocardial infarction [Unknown]
  - Headache [Unknown]

NARRATIVE: CASE EVENT DATE: 2004
